FAERS Safety Report 12706195 (Version 2)
Quarter: 2016Q3

REPORT INFORMATION
  Report Type: Spontaneous
  Country: US (occurrence: US)
  Receive Date: 20160901
  Receipt Date: 20160901
  Transmission Date: 20161109
  Serious: No
  Sender: FDA-Public Use
  Company Number: US-JAZZ-2016-US-007738

PATIENT
  Age: 69 Year
  Sex: Female

DRUGS (59)
  1. XYREM [Suspect]
     Active Substance: SODIUM OXYBATE
     Dosage: 2.75 G, SECOND DOSE
     Route: 048
     Dates: start: 201112, end: 2012
  2. CELEBREX [Concomitant]
     Active Substance: CELECOXIB
  3. CYANOCOBALAMIN. [Concomitant]
     Active Substance: CYANOCOBALAMIN
  4. HYDROCORTISONE. [Concomitant]
     Active Substance: HYDROCORTISONE
  5. CYMBALTA [Concomitant]
     Active Substance: DULOXETINE HYDROCHLORIDE
  6. DUONEB [Concomitant]
     Active Substance: ALBUTEROL SULFATE\IPRATROPIUM BROMIDE
  7. SPIRULINA [Concomitant]
     Active Substance: SPIRULINA
  8. XYREM [Suspect]
     Active Substance: SODIUM OXYBATE
     Dosage: 3.5 G, FIRST DOSE
     Route: 048
     Dates: start: 201112, end: 2012
  9. MUPIROCIN. [Concomitant]
     Active Substance: MUPIROCIN
  10. CHLOROPHYLL [Concomitant]
  11. CLA [Concomitant]
  12. ESTER-C [Concomitant]
     Active Substance: CALCIUM\VITAMINS
  13. GINGER ROOT [Concomitant]
     Active Substance: GINGER
  14. TAMIFLU [Concomitant]
     Active Substance: OSELTAMIVIR PHOSPHATE
  15. MULTIVITAMINS [Concomitant]
     Active Substance: VITAMINS
  16. XYREM [Suspect]
     Active Substance: SODIUM OXYBATE
     Dosage: DOSE ADJUSTMENTS
     Route: 048
  17. DIPHENOXYLATE/ATROPINE [Concomitant]
     Active Substance: ATROPINE\DIPHENOXYLATE
  18. TRAMADOL HCL [Concomitant]
     Active Substance: TRAMADOL HYDROCHLORIDE
  19. OMEPRAZOLE. [Concomitant]
     Active Substance: OMEPRAZOLE
  20. XYREM [Suspect]
     Active Substance: SODIUM OXYBATE
     Dosage: 4.5 G, BID
     Route: 048
     Dates: start: 201412
  21. THYROID [Concomitant]
     Active Substance: LEVOTHYROXINE\LIOTHYRONINE
  22. ESTRADIOL. [Concomitant]
     Active Substance: ESTRADIOL
  23. ALLEGRA-D [Concomitant]
     Active Substance: FEXOFENADINE\PSEUDOEPHEDRINE
  24. NAPROSYN [Concomitant]
     Active Substance: NAPROXEN
  25. CATS CLAW [Concomitant]
  26. FIBER [Concomitant]
     Active Substance: PSYLLIUM HUSK
  27. FOLIC ACID. [Concomitant]
     Active Substance: FOLIC ACID
  28. LICORICE ROOT [Concomitant]
     Active Substance: LICORICE
  29. PEPSIN [Concomitant]
     Active Substance: PEPSIN
  30. BUPROPION. [Concomitant]
     Active Substance: BUPROPION
  31. DULOXETINE. [Concomitant]
     Active Substance: DULOXETINE
  32. MOMETASONE FUROATE. [Concomitant]
     Active Substance: MOMETASONE FUROATE
  33. BIOTIN [Concomitant]
     Active Substance: BIOTIN
  34. CALCIUM +D [Concomitant]
     Active Substance: CALCIUM\VITAMIN D
  35. ELDERBERRY [Concomitant]
     Active Substance: HERBALS
  36. L-LYSINE [Concomitant]
     Active Substance: LYSINE
  37. NETTLE LEAF [Concomitant]
  38. XYREM [Suspect]
     Active Substance: SODIUM OXYBATE
     Indication: FIBROMYALGIA
     Dosage: 3 G, BID
     Route: 048
     Dates: start: 200603, end: 200607
  39. DICYCLOMINE [Concomitant]
     Active Substance: DICYCLOMINE HYDROCHLORIDE
  40. CIPRO [Concomitant]
     Active Substance: CIPROFLOXACIN HYDROCHLORIDE
  41. DICYCLOMINE [Concomitant]
     Active Substance: DICYCLOMINE HYDROCHLORIDE
  42. GINKGO BILOBA [Concomitant]
     Active Substance: GINKGO
  43. HYDROCODONE POLISTIREX AND CHLORPHENIR [Concomitant]
  44. ZINC [Concomitant]
     Active Substance: ZINC\ZINC CHLORIDE
  45. XYREM [Suspect]
     Active Substance: SODIUM OXYBATE
     Dosage: 2.25 G, BID
     Route: 048
     Dates: start: 201412, end: 201412
  46. SUMATRIPTAN SUCCINATE. [Concomitant]
     Active Substance: SUMATRIPTAN SUCCINATE
  47. TRAZODONE HYDROCHLORIDE. [Concomitant]
     Active Substance: TRAZODONE HYDROCHLORIDE
  48. VITAMIN B12 [Concomitant]
     Active Substance: CYANOCOBALAMIN
  49. VITAMIN D3 [Concomitant]
     Active Substance: CHOLECALCIFEROL
  50. L-GLUTAMINE [Concomitant]
  51. LECITHIN [Concomitant]
     Active Substance: LECITHIN
  52. LEMON BALM [Concomitant]
  53. OMEGA-3 FISH OIL +VITAMIN D [Concomitant]
  54. POTASSIUM GLUCONATE [Concomitant]
     Active Substance: POTASSIUM GLUCONATE
  55. RED CLOVER [Concomitant]
     Active Substance: RED CLOVER
  56. SELENIUM [Concomitant]
     Active Substance: SELENIUM
  57. XYREM [Suspect]
     Active Substance: SODIUM OXYBATE
     Dosage: DOSE ADJUSTMENTS
     Route: 048
  58. CITALOPRAM [Concomitant]
     Active Substance: CITALOPRAM HYDROBROMIDE
  59. UBIQUINOL BIOACTIVE [Concomitant]

REACTIONS (2)
  - Crystal urine present [Unknown]
  - Intentional product use issue [Unknown]

NARRATIVE: CASE EVENT DATE: 201603
